FAERS Safety Report 8832380 (Version 1)
Quarter: 2012Q4

REPORT INFORMATION
  Report Type: 
  Country: DE (occurrence: DE)
  Receive Date: 20121009
  Receipt Date: 20121009
  Transmission Date: 20130627
  Serious: Yes (Hospitalization)
  Sender: FDA-Public Use
  Company Number: DE-PFIZER INC-2012246237

PATIENT
  Age: 52 Year
  Sex: Male
  Weight: 48 kg

DRUGS (4)
  1. GENOTROPIN [Suspect]
     Indication: GROWTH HORMONE DEFICIENCY
     Dosage: 0.4 mg, 7/WK
     Route: 058
     Dates: start: 20010315
  2. CALCIUM-SANDOZ FORTE [Concomitant]
     Indication: OSTEOPOROSIS
     Dosage: UNK
     Dates: start: 19980824
  3. CALCIUM-DURA [Concomitant]
     Indication: BONE DISORDER
     Dosage: UNK
     Dates: start: 20040809
  4. CALCIUM-DURA [Concomitant]
     Indication: CHONDROPATHY

REACTIONS (1)
  - Eye disorder [Unknown]
